FAERS Safety Report 8575357-0 (Version None)
Quarter: 2012Q3

REPORT INFORMATION
  Report Type: 
  Country: None (occurrence: None)
  Receive Date: 20120807
  Receipt Date: 20120802
  Transmission Date: 20120928
  Serious: No
  Sender: FDA-Public Use
  Company Number: US-PFIZER INC-2012188924

PATIENT
  Age: 52 Year
  Sex: Female
  Weight: 81.633 kg

DRUGS (11)
  1. LYRICA [Suspect]
     Indication: FIBROMYALGIA
     Dosage: 75 MG, 2X/DAY
  2. PRAVASTATIN [Concomitant]
     Indication: BLOOD CHOLESTEROL INCREASED
     Dosage: 40 MG, DAILY
  3. GEMFIBROZIL [Concomitant]
     Indication: BLOOD CHOLESTEROL INCREASED
     Dosage: 600 MG, DAILY
  4. XANAX [Concomitant]
     Indication: ANXIETY
  5. LYRICA [Suspect]
     Indication: DIABETIC NEUROPATHY
  6. LANTUS [Concomitant]
     Indication: DIABETES MELLITUS
     Dosage: 60 IU, DAILY AT NIGHT
  7. METOPROLOL TARTRATE [Concomitant]
     Indication: HYPERTENSION
     Dosage: 50 MG, 2X/DAY
  8. FLEXERIL [Concomitant]
     Indication: MUSCLE RELAXANT THERAPY
     Dosage: 10 MG, AS NEEDED
  9. ZOLOFT [Concomitant]
     Indication: DEPRESSION
     Dosage: 50 MG, DAILY
  10. XANAX [Concomitant]
     Indication: PANIC ATTACK
     Dosage: 1 MG, 2X/DAY
  11. NAPROXEN [Concomitant]
     Indication: PAIN
     Dosage: 500 MG, AS NEEDED

REACTIONS (1)
  - PAIN [None]
